FAERS Safety Report 4661823-7 (Version None)
Quarter: 2005Q2

REPORT INFORMATION
  Report Type: 
  Country: None (occurrence: None)
  Receive Date: 20050511
  Receipt Date: 20050511
  Transmission Date: 20051028
  Serious: Yes (Hospitalization)
  Sender: FDA-Public Use
  Company Number: None

PATIENT
  Sex: Female
  Weight: 65.7716 kg

DRUGS (12)
  1. FLOMAX [Suspect]
     Indication: URINARY RETENTION
     Dosage: FLOMAX .4 MG PO QD
     Route: 048
  2. FENTANYL [Concomitant]
  3. LEVAQUIN [Concomitant]
  4. TOPROL-XL [Concomitant]
  5. NEURONTIN [Concomitant]
  6. VANTIN [Concomitant]
  7. DULCOLAX [Concomitant]
  8. ALUMINUM HYDROXIDE AND MAGNESIUM TRISILICATE [Concomitant]
  9. PHENERGAN [Concomitant]
  10. PERCOCET [Concomitant]
  11. TYLENOL (CAPLET) [Concomitant]
  12. MOM [Concomitant]

REACTIONS (1)
  - ORTHOSTATIC HYPOTENSION [None]
